FAERS Safety Report 20619374 (Version 1)
Quarter: 2022Q1

REPORT INFORMATION
  Report Type: Spontaneous
  Country: None (occurrence: US)
  Receive Date: 20220322
  Receipt Date: 20220322
  Transmission Date: 20220423
  Serious: Yes (Other)
  Sender: FDA-Public Use
  Company Number: US-Y-mAbs Therapeutics-2126983

PATIENT
  Sex: Male

DRUGS (1)
  1. DANYELZA [Suspect]
     Active Substance: NAXITAMAB-GQGK
     Route: 042

REACTIONS (2)
  - Myelosuppression [Unknown]
  - Full blood count abnormal [Unknown]
